FAERS Safety Report 6618268-X (Version None)
Quarter: 2010Q1

REPORT INFORMATION
  Report Type: 
  Country: None (occurrence: None)
  Receive Date: 20100308
  Receipt Date: 20100301
  Transmission Date: 20100710
  Serious: Yes (Hospitalization)
  Sender: FDA-Public Use
  Company Number: US-JNJFOC-20100301200

PATIENT
  Sex: Female
  Weight: 58.97 kg

DRUGS (8)
  1. FENTANYL-100 [Suspect]
     Indication: BACK PAIN
     Route: 062
  2. FENTANYL-100 [Suspect]
     Route: 062
  3. AMBIEN [Concomitant]
     Indication: SLEEP DISORDER
     Route: 048
  4. SEROQUEL [Concomitant]
     Indication: INSOMNIA
     Route: 048
  5. TOPROL-XL [Concomitant]
     Indication: CARDIAC DISORDER
     Route: 048
  6. NORVASC [Concomitant]
     Indication: BLOOD PRESSURE
     Route: 048
  7. LEVOTHYROXINE [Concomitant]
     Indication: THYROID DISORDER
     Route: 048
  8. LORAZEPAM [Concomitant]
     Indication: PANIC ATTACK
     Route: 048

REACTIONS (4)
  - BLOOD GLUCOSE INCREASED [None]
  - CHEST PAIN [None]
  - DYSURIA [None]
  - WEIGHT INCREASED [None]
